FAERS Safety Report 19667012 (Version 2)
Quarter: 2021Q3

REPORT INFORMATION
  Report Type: Report from Study
  Country: FR (occurrence: FR)
  Receive Date: 20210806
  Receipt Date: 20210812
  Transmission Date: 20211014
  Serious: Yes (Hospitalization, Other)
  Sender: FDA-Public Use
  Company Number: FR-BRISTOL-MYERS SQUIBB COMPANY-BMS-2021-075910

PATIENT
  Age: 63 Year
  Sex: Female
  Weight: 52 kg

DRUGS (4)
  1. IPILIMUMAB [Suspect]
     Active Substance: IPILIMUMAB
     Indication: METASTATIC MALIGNANT MELANOMA
     Dosage: 52 MILLIGRAM
     Route: 042
     Dates: start: 20210507, end: 2021
  2. ATORVASTATINE [ATORVASTATIN] [Concomitant]
     Active Substance: ATORVASTATIN
     Indication: HYPERCHOLESTEROLAEMIA
     Dosage: 10 UNITS, QD
     Route: 048
     Dates: start: 201911
  3. NIVOLUMAB [Suspect]
     Active Substance: NIVOLUMAB
     Indication: METASTATIC MALIGNANT MELANOMA
     Dosage: 156 MILLIGRAM
     Route: 042
     Dates: start: 20210507, end: 20210707
  4. DOLIPRANE [Concomitant]
     Active Substance: ACETAMINOPHEN
     Indication: PAIN
     Dosage: 1 UNIT, PRN
     Route: 048
     Dates: start: 202101

REACTIONS (1)
  - Cardiotoxicity [Unknown]
